FAERS Safety Report 10025577 (Version 1)
Quarter: 2014Q1

REPORT INFORMATION
  Report Type: Spontaneous
  Country: GB (occurrence: GB)
  Receive Date: 20140320
  Receipt Date: 20140320
  Transmission Date: 20141002
  Serious: Yes (Other)
  Sender: FDA-Public Use
  Company Number: GB-GILEAD-2014-0097169

PATIENT
  Sex: Male

DRUGS (4)
  1. TENOFOVIR DISOPROXIL FUMARATE [Suspect]
     Indication: PRODUCT USED FOR UNKNOWN INDICATION
     Dosage: 1 DF, QD
     Route: 065
  2. DARUNAVIR [Concomitant]
     Dosage: 600 MG, BID
  3. RITONAVIR [Concomitant]
     Dosage: 100 MG, QD
  4. RALTEGRAVIR [Concomitant]

REACTIONS (1)
  - Drug level decreased [Unknown]
